FAERS Safety Report 24170314 (Version 1)
Quarter: 2024Q3

REPORT INFORMATION
  Report Type: Spontaneous
  Country: CN (occurrence: CN)
  Receive Date: 20240803
  Receipt Date: 20240803
  Transmission Date: 20241016
  Serious: Yes (Life-Threatening, Other)
  Sender: Teyro Labs
  Company Number: CN-TEYRO-2024-TY-000350

PATIENT

DRUGS (3)
  1. CARBOPLATIN [Suspect]
     Active Substance: CARBOPLATIN
     Indication: Non-small cell lung cancer stage IIIA
     Dosage: 3 CYCLES, AUC 5 VIA INTRAVENOUS AT 3 WEEK INTERVALS
     Route: 042
  2. SINTILIMAB [Suspect]
     Active Substance: SINTILIMAB
     Indication: Non-small cell lung cancer stage IIIA
     Dosage: 3 CYCLES, 200 MG VIA INTRAVENOUS AT 3 WEEK INTERVAL
     Route: 042
  3. PACLITAXEL [Suspect]
     Active Substance: PACLITAXEL
     Indication: Non-small cell lung cancer stage IIIA
     Dosage: 3 CYCLES, 260 MG/M2 VIA INTRAVENOUS AT 3 WEEK INTERVAL
     Route: 042

REACTIONS (9)
  - Hyperthyroidism [Unknown]
  - Granulocytopenia [Unknown]
  - Leukopenia [Unknown]
  - Therapy partial responder [Unknown]
  - Anaemia [Unknown]
  - Vomiting [Unknown]
  - Nausea [Unknown]
  - Fatigue [Unknown]
  - Off label use [Unknown]
